FAERS Safety Report 12257051 (Version 1)
Quarter: 2016Q2

REPORT INFORMATION
  Report Type: Spontaneous
  Country: RO (occurrence: RO)
  Receive Date: 20160412
  Receipt Date: 20160412
  Transmission Date: 20160815
  Serious: Yes (Other)
  Sender: FDA-Public Use
  Company Number: RO-JNJFOC-20160404309

PATIENT
  Age: 66 Year
  Sex: Female
  Weight: 100 kg

DRUGS (5)
  1. CAELYX [Suspect]
     Active Substance: DOXORUBICIN HYDROCHLORIDE
     Indication: BREAST CANCER
     Dosage: THIRD CYCLE
     Route: 042
     Dates: end: 20160330
  2. PALONOSETRON [Concomitant]
     Active Substance: PALONOSETRON
     Indication: ANTIEMETIC SUPPORTIVE CARE
     Route: 042
  3. CAELYX [Suspect]
     Active Substance: DOXORUBICIN HYDROCHLORIDE
     Indication: BREAST CANCER
     Dosage: SECOND CYCLE
     Route: 042
  4. CAELYX [Suspect]
     Active Substance: DOXORUBICIN HYDROCHLORIDE
     Indication: BREAST CANCER
     Dosage: FIRST CYCLE
     Route: 042
     Dates: start: 201601
  5. RANITIDINE. [Concomitant]
     Active Substance: RANITIDINE
     Route: 042

REACTIONS (1)
  - Dermatitis [Recovered/Resolved]

NARRATIVE: CASE EVENT DATE: 201602
